FAERS Safety Report 5614230-4 (Version None)
Quarter: 2008Q1

REPORT INFORMATION
  Report Type: 
  Country: None (occurrence: None)
  Receive Date: 20080205
  Receipt Date: 20080126
  Transmission Date: 20080703
  Serious: Yes (Other)
  Sender: FDA-Public Use
  Company Number: CN-PFIZER INC-2008008850

PATIENT
  Age: 56 Year
  Sex: Female

DRUGS (5)
  1. SOLU-MEDROL [Suspect]
     Indication: ASTHMA
     Route: 042
     Dates: start: 20080121, end: 20080121
  2. KETOTIFEN FUMARATE [Concomitant]
     Route: 048
  3. SALBUTAMOL SULFATE [Concomitant]
     Route: 055
     Dates: start: 20080121
  4. LEVOFLOXACIN [Concomitant]
     Indication: INFLAMMATION
     Dates: start: 20080121
  5. AMINOPHYLLINE [Concomitant]
     Dates: start: 20080121

REACTIONS (1)
  - RESPIRATORY DISTRESS [None]
